FAERS Safety Report 18040034 (Version 7)
Quarter: 2021Q4

REPORT INFORMATION
  Report Type: Spontaneous
  Country: US (occurrence: US)
  Receive Date: 20200717
  Receipt Date: 20211027
  Transmission Date: 20220303
  Serious: Yes (Other)
  Sender: FDA-Public Use
  Company Number: US-GILEAD-2020-0481635

PATIENT
  Age: 45 Year
  Sex: Male

DRUGS (3)
  1. TRUVADA [Suspect]
     Active Substance: EMTRICITABINE\TENOFOVIR DISOPROXIL FUMARATE
     Indication: HIV infection
     Dosage: UNK
     Route: 048
     Dates: start: 20120121, end: 20170220
  2. TRUVADA [Suspect]
     Active Substance: EMTRICITABINE\TENOFOVIR DISOPROXIL FUMARATE
     Indication: Hepatitis B
     Dosage: UNK
     Route: 048
     Dates: start: 20120121, end: 20180129
  3. DESCOVY [Concomitant]
     Active Substance: EMTRICITABINE\TENOFOVIR ALAFENAMIDE FUMARATE

REACTIONS (20)
  - Chronic kidney disease [Not Recovered/Not Resolved]
  - Osteoporosis [Recovered/Resolved]
  - Osteonecrosis [Unknown]
  - Rib fracture [Recovered/Resolved]
  - Ankle fracture [Recovered/Resolved]
  - Femur fracture [Recovered/Resolved]
  - Spinal fracture [Recovered/Resolved]
  - Pelvic fracture [Recovered/Resolved]
  - Hip fracture [Recovered/Resolved]
  - Hip fracture [Recovered/Resolved]
  - Multiple fractures [Unknown]
  - Pain [Unknown]
  - Emotional distress [Unknown]
  - Anxiety [Unknown]
  - Anhedonia [Unknown]
  - Ankle fracture [Recovered/Resolved]
  - Rib fracture [Recovered/Resolved]
  - Bone density decreased [Unknown]
  - Bone loss [Unknown]
  - Blood creatinine increased [Not Recovered/Not Resolved]

NARRATIVE: CASE EVENT DATE: 20120423
